FAERS Safety Report 12694983 (Version 1)
Quarter: 2016Q3

REPORT INFORMATION
  Report Type: Report from Study
  Country: CA (occurrence: CA)
  Receive Date: 20160829
  Receipt Date: 20160829
  Transmission Date: 20161109
  Serious: Yes (Other)
  Sender: FDA-Public Use
  Company Number: CA-ABBVIE-16K-028-1579723-00

PATIENT
  Sex: Female

DRUGS (3)
  1. HUMIRA [Suspect]
     Active Substance: ADALIMUMAB
     Indication: CROHN^S DISEASE
     Route: 058
     Dates: start: 20120320, end: 201602
  2. HUMIRA [Suspect]
     Active Substance: ADALIMUMAB
     Dosage: RELOADING: 160 MG WEEK 0, 80MG WEEK 2 AND THEN 40 MG WEEKLY  FOR 12 MONTHS
     Route: 058
     Dates: start: 201602, end: 201602
  3. HUMIRA [Suspect]
     Active Substance: ADALIMUMAB
     Route: 058
     Dates: start: 2016

REACTIONS (7)
  - Abdominal abscess [Recovered/Resolved]
  - Fistula discharge [Not Recovered/Not Resolved]
  - Fistula [Not Recovered/Not Resolved]
  - Rash vesicular [Not Recovered/Not Resolved]
  - Drug level decreased [Not Recovered/Not Resolved]
  - Gastrointestinal fistula [Recovered/Resolved]
  - Blister rupture [Not Recovered/Not Resolved]

NARRATIVE: CASE EVENT DATE: 2016
